FAERS Safety Report 10174067 (Version 1)
Quarter: 2014Q2

REPORT INFORMATION
  Report Type: Spontaneous
  Country: JM (occurrence: JM)
  Receive Date: 20140515
  Receipt Date: 20140515
  Transmission Date: 20141212
  Serious: Yes (Other)
  Sender: FDA-Public Use
  Company Number: PHHY2014JM058366

PATIENT
  Sex: 0

DRUGS (1)
  1. LECTRUM [Suspect]

REACTIONS (1)
  - Haemorrhage [Unknown]
